FAERS Safety Report 21176984 (Version 2)
Quarter: 2022Q3

REPORT INFORMATION
  Report Type: Spontaneous
  Country: JP (occurrence: JP)
  Receive Date: 20220805
  Receipt Date: 20220826
  Transmission Date: 20221027
  Serious: No
  Sender: FDA-Public Use
  Company Number: JP-ELI_LILLY_AND_COMPANY-JP202207013439

PATIENT
  Age: 42 Year
  Sex: Female

DRUGS (13)
  1. REYVOW [Suspect]
     Active Substance: LASMIDITAN
     Indication: Migraine
     Dosage: 100 MG, PRN
     Route: 048
     Dates: start: 20220727, end: 20220727
  2. DISTIGMINE BROMIDE [Concomitant]
     Active Substance: DISTIGMINE BROMIDE
     Indication: Dysuria
     Dosage: UNK
     Route: 065
     Dates: start: 20220727
  3. RILUZOLE [Concomitant]
     Active Substance: RILUZOLE
     Indication: Amyotrophic lateral sclerosis
     Dosage: 50 MG, BID
     Route: 065
  4. METHYLCOBALAMIN [Concomitant]
     Active Substance: METHYLCOBALAMIN
     Indication: Vitamin supplementation
     Dosage: 1 G, TID
     Route: 065
  5. HICEE [ASCORBIC ACID] [Concomitant]
     Indication: Vitamin supplementation
     Route: 065
  6. CARBOCYSTEINE [Concomitant]
     Active Substance: CARBOCYSTEINE
     Route: 065
  7. MIYA-BM [Concomitant]
     Active Substance: CLOSTRIDIUM BUTYRICUM SPORES STRAIN M-55
     Route: 065
  8. SHAKUYAKUKANZOTO [Concomitant]
     Active Substance: HERBALS
     Route: 065
  9. URSO [Concomitant]
     Active Substance: URSODIOL
     Route: 065
  10. COLCHICINE [Concomitant]
     Active Substance: COLCHICINE
     Route: 065
  11. ROPINIROLE HYDROCHLORIDE [Concomitant]
     Active Substance: ROPINIROLE HYDROCHLORIDE
     Dosage: 1 UNK
     Route: 065
  12. ALESION [Concomitant]
     Active Substance: EPINASTINE HYDROCHLORIDE
     Route: 065
  13. LYRICA [Concomitant]
     Active Substance: PREGABALIN
     Route: 065

REACTIONS (2)
  - Chills [Recovered/Resolved]
  - Hyperhidrosis [Recovered/Resolved]

NARRATIVE: CASE EVENT DATE: 20220727
